FAERS Safety Report 19184575 (Version 1)
Quarter: 2021Q2

REPORT INFORMATION
  Report Type: Spontaneous
  Country: US (occurrence: US)
  Receive Date: 20210426
  Receipt Date: 20210426
  Transmission Date: 20210717
  Serious: Yes (Hospitalization)
  Sender: FDA-Public Use
  Company Number: None

PATIENT
  Age: 56 Year
  Sex: Male

DRUGS (1)
  1. HYDRALAZINE (HYDRALAZINE HCL 100MG TAB) [Suspect]
     Active Substance: HYDRALAZINE HYDROCHLORIDE
     Indication: HYPERTENSION
     Dates: start: 20181109, end: 20190528

REACTIONS (7)
  - Angina pectoris [None]
  - Arthralgia [None]
  - Palpitations [None]
  - Blood creatinine increased [None]
  - Systemic lupus erythematosus [None]
  - Myalgia [None]
  - Blood urea increased [None]

NARRATIVE: CASE EVENT DATE: 20190528
